FAERS Safety Report 5811155-6 (Version None)
Quarter: 2008Q3

REPORT INFORMATION
  Report Type: 
  Country: None (occurrence: None)
  Receive Date: 20080710
  Receipt Date: 20080701
  Transmission Date: 20090109
  Serious: Yes (Death, Hospitalization)
  Sender: FDA-Public Use
  Company Number: 2008AP001637

PATIENT
  Age: 48 Year
  Sex: Male

DRUGS (4)
  1. SERTRALINE HYDROCHLORIDE [Suspect]
  2. ATORVASTATIN CALCIUM [Suspect]
     Indication: SCHIZOPHRENIA
  3. QUETIAPINE FUMARATE [Suspect]
     Indication: SCHIZOPHRENIA
  4. UNSPECIFIED DRUGS [Suspect]
     Indication: SCHIZOPHRENIA

REACTIONS (3)
  - FALL [None]
  - HEPATIC FAILURE [None]
  - HEPATIC STEATOSIS [None]
